FAERS Safety Report 12304466 (Version 1)
Quarter: 2016Q2

REPORT INFORMATION
  Report Type: Spontaneous
  Country: CO (occurrence: CO)
  Receive Date: 20160426
  Receipt Date: 20160426
  Transmission Date: 20160815
  Serious: Yes (Other)
  Sender: FDA-Public Use
  Company Number: CO-BAXTER-2016BAX020506

PATIENT
  Age: 63 Year
  Sex: Female

DRUGS (6)
  1. OFTAMOX [Concomitant]
     Indication: POSTOPERATIVE CARE
     Dosage: 1 DROP EVERY 3 HOURS
     Route: 047
     Dates: start: 20160413
  2. PREDNISOLONE. [Concomitant]
     Active Substance: PREDNISOLONE
     Indication: POSTOPERATIVE CARE
     Dosage: 1 DROP EVERY 2 HOURS
     Route: 047
     Dates: start: 20160413
  3. LACTATED RINGERS [Suspect]
     Active Substance: CALCIUM CHLORIDE\POTASSIUM CHLORIDE\SODIUM CHLORIDE\SODIUM LACTATE
     Indication: EYE IRRIGATION
     Route: 047
     Dates: start: 20160413, end: 20160413
  4. TRYPAN BLUE [Suspect]
     Active Substance: TRYPAN BLUE
     Indication: VITAL DYE STAINING CORNEA PRESENT
     Route: 031
     Dates: start: 20160413, end: 20160413
  5. LACTATED RINGERS [Suspect]
     Active Substance: CALCIUM CHLORIDE\POTASSIUM CHLORIDE\SODIUM CHLORIDE\SODIUM LACTATE
     Indication: OFF LABEL USE
  6. DISCOVISC [Suspect]
     Active Substance: CHONDROITIN SULFATE (BOVINE)\HYALURONATE SODIUM
     Indication: SUPPORTIVE CARE
     Route: 031
     Dates: start: 20160413, end: 20160413

REACTIONS (1)
  - Corneal oedema [Not Recovered/Not Resolved]

NARRATIVE: CASE EVENT DATE: 20160414
